FAERS Safety Report 17270250 (Version 1)
Quarter: 2020Q1

REPORT INFORMATION
  Report Type: Spontaneous
  Country: US (occurrence: US)
  Receive Date: 20191223
  Receipt Date: 20191223
  Transmission Date: 20200409
  Serious: No
  Sender: FDA-Public Use
  Company Number: None

PATIENT
  Age: 83 Year
  Sex: Female

DRUGS (18)
  1. CENTRUM [Concomitant]
     Active Substance: VITAMINS
  2. TELMISA/HCTZ [Concomitant]
  3. SODIUM CHLOR NEB [Concomitant]
  4. METAMUCIL [Concomitant]
     Active Substance: PLANTAGO SEED
  5. AMLODIPINE [Concomitant]
     Active Substance: AMLODIPINE BESYLATE
  6. SOTALOL HCL [Concomitant]
     Active Substance: SOTALOL
  7. BENO [Concomitant]
  8. METOPROLOL TARTRATE. [Concomitant]
     Active Substance: METOPROLOL TARTRATE
  9. TOBRAMYCIN. [Concomitant]
     Active Substance: TOBRAMYCIN
  10. CALCIUM [Concomitant]
     Active Substance: CALCIUM
  11. HYDROCHILOROT [Concomitant]
  12. IBANDRONATE [Concomitant]
     Active Substance: IBANDRONATE SODIUM
  13. BETHKIS [Suspect]
     Active Substance: TOBRAMYCIN
     Indication: CHRONIC OBSTRUCTIVE PULMONARY DISEASE
     Dosage: OTHER ROUTE: NEBULIZER?OTHER FREQUENCY:EVERY OTHER MONTH;?
     Route: 055
     Dates: start: 20190226
  14. VITAMIN D3 [Concomitant]
     Active Substance: CHOLECALCIFEROL
  15. LEVOTHYROXIN [Concomitant]
     Active Substance: LEVOTHYROXINE
  16. ELIQUIS [Concomitant]
     Active Substance: APIXABAN
  17. PEPCID AC [Concomitant]
     Active Substance: FAMOTIDINE
  18. POLYETH GLYC POW [Concomitant]

REACTIONS (2)
  - Dyspnoea [None]
  - Chest pain [None]

NARRATIVE: CASE EVENT DATE: 2019
